FAERS Safety Report 15130542 (Version 1)
Quarter: 2018Q3

REPORT INFORMATION
  Report Type: Report from Study
  Country: US (occurrence: US)
  Receive Date: 20180711
  Receipt Date: 20180711
  Transmission Date: 20181010
  Serious: Yes (Hospitalization)
  Sender: FDA-Public Use
  Company Number: US-JNJFOC-20180712445

PATIENT
  Sex: Male

DRUGS (13)
  1. VITAMIN B [Concomitant]
     Active Substance: VITAMIN B
  2. ZANTAC [Concomitant]
     Active Substance: RANITIDINE HYDROCHLORIDE
  3. XARELTO [Concomitant]
     Active Substance: RIVAROXABAN
  4. UBIDECARENONE [Concomitant]
     Active Substance: UBIDECARENONE
  5. SILYBUM MARIANUM [Concomitant]
     Active Substance: DIETARY SUPPLEMENT\HERBALS\MILK THISTLE
  6. MIRALAX [Concomitant]
     Active Substance: POLYETHYLENE GLYCOL 3350
  7. BIFIDOBACTERIUM LACTIS [Concomitant]
     Active Substance: BIFIDOBACTERIUM ANIMALIS LACTIS
  8. IMBRUVICA [Suspect]
     Active Substance: IBRUTINIB
     Indication: MANTLE CELL LYMPHOMA
     Route: 048
     Dates: start: 20180417
  9. LISINOPRIL. [Concomitant]
     Active Substance: LISINOPRIL
  10. MULTIVITAMINS [Concomitant]
     Active Substance: VITAMINS
  11. METOPROLOL. [Concomitant]
     Active Substance: METOPROLOL
  12. LORAZEPAM. [Concomitant]
     Active Substance: LORAZEPAM
  13. MAGNESIUM [Concomitant]
     Active Substance: MAGNESIUM

REACTIONS (2)
  - Haematemesis [Unknown]
  - Adverse drug reaction [Unknown]
